FAERS Safety Report 10365667 (Version 2)
Quarter: 2014Q4

REPORT INFORMATION
  Report Type: Spontaneous
  Country: US (occurrence: None)
  Receive Date: 20140804
  Receipt Date: 20141024
  Transmission Date: 20150528
  Serious: Yes (Other)
  Sender: FDA-Public Use
  Company Number: 2014-US-009431

PATIENT
  Age: 39 Year
  Sex: Female

DRUGS (1)
  1. XYREM [Suspect]
     Active Substance: SODIUM OXYBATE
     Indication: NARCOLEPSY
     Route: 048
     Dates: start: 201106, end: 2011

REACTIONS (7)
  - Anxiety [None]
  - Drug effect decreased [None]
  - Somnambulism [None]
  - Condition aggravated [None]
  - Inappropriate schedule of drug administration [None]
  - Seizure [None]
  - Sleep talking [None]
